FAERS Safety Report 25890084 (Version 1)
Quarter: 2025Q4

REPORT INFORMATION
  Report Type: Spontaneous
  Country: EU (occurrence: EU)
  Receive Date: 20251007
  Receipt Date: 20251007
  Transmission Date: 20260117
  Serious: Yes (Hospitalization)
  Sender: RANBAXY
  Company Number: EU-LRB-01067286

PATIENT
  Age: 63 Year
  Sex: Female
  Weight: 65 kg

DRUGS (1)
  1. ESOMEPRAZOLE [Suspect]
     Active Substance: ESOMEPRAZOLE
     Indication: Product used for unknown indication
     Dosage: 1X1 CAPSULE
     Route: 048
     Dates: start: 20240829

REACTIONS (3)
  - Faeces discoloured [Recovering/Resolving]
  - Arthralgia [Recovering/Resolving]
  - Chest discomfort [Recovering/Resolving]
